FAERS Safety Report 9830434 (Version 2)
Quarter: 2014Q1

REPORT INFORMATION
  Report Type: Report from Study
  Country: AU (occurrence: AU)
  Receive Date: 20140120
  Receipt Date: 20140120
  Transmission Date: 20141002
  Serious: Yes (Hospitalization)
  Sender: FDA-Public Use
  Company Number: AU-ROCHE-1061905

PATIENT
  Age: 75 Year
  Sex: Female
  Weight: 57.65 kg

DRUGS (19)
  1. OBINUTUZUMAB [Suspect]
     Indication: DIFFUSE LARGE B-CELL LYMPHOMA
     Dosage: DATE OF MOST RECENT DOSE (250 ML, DOSE CONCENTRATION : 4 MG/ML) PRIOT TO SAE :18/APR/2012.
     Route: 042
     Dates: start: 20120411
  2. CYCLOPHOSPHAMIDE [Suspect]
     Indication: DIFFUSE LARGE B-CELL LYMPHOMA
     Route: 042
     Dates: start: 20120412
  3. DOXORUBICIN [Suspect]
     Indication: DIFFUSE LARGE B-CELL LYMPHOMA
     Route: 042
     Dates: start: 20120412
  4. VINCRISTINE [Suspect]
     Indication: DIFFUSE LARGE B-CELL LYMPHOMA
     Route: 040
     Dates: start: 20120412
  5. PREDNISONE [Suspect]
     Indication: DIFFUSE LARGE B-CELL LYMPHOMA
     Dosage: DATE OF MOST RECENT DOSE (100 MG) PRIOT TO SAE :16/APR/2012.
     Route: 048
     Dates: start: 20120412
  6. SOTALOL [Concomitant]
     Indication: ATRIAL FIBRILLATION
     Route: 065
     Dates: start: 1997
  7. NEXIUM [Concomitant]
     Indication: GASTROOESOPHAGEAL REFLUX DISEASE
     Route: 065
     Dates: start: 1992
  8. PANADOL [Concomitant]
     Indication: ABDOMINAL PAIN
     Route: 065
     Dates: start: 201202, end: 20121003
  9. TEMAZEPAM [Concomitant]
     Indication: INSOMNIA
     Route: 065
     Dates: start: 1992
  10. ONDANSETRON [Concomitant]
     Indication: NAUSEA
     Route: 065
     Dates: start: 20120410, end: 20121003
  11. ALLOPURINOL [Concomitant]
     Indication: PROPHYLAXIS
     Route: 065
     Dates: start: 20120402, end: 20120815
  12. URAL [Concomitant]
     Indication: PROPHYLAXIS
     Route: 065
     Dates: start: 20120402, end: 20120502
  13. PARACETAMOL [Concomitant]
     Indication: PREMEDICATION
     Route: 065
     Dates: start: 20120411, end: 20120411
  14. PARACETAMOL [Concomitant]
     Route: 065
     Dates: start: 20120418, end: 20120418
  15. PARACETAMOL [Concomitant]
     Route: 065
     Dates: start: 20120426, end: 20120426
  16. CLARATYNE [Concomitant]
     Indication: PREMEDICATION
     Route: 065
     Dates: start: 20120411, end: 20120411
  17. CLARATYNE [Concomitant]
     Route: 065
     Dates: start: 20120418, end: 20120418
  18. CLARATYNE [Concomitant]
     Route: 065
     Dates: start: 20120426, end: 20120426
  19. METHYLPREDNISOLONE [Concomitant]
     Indication: PREMEDICATION
     Route: 065
     Dates: start: 20120411, end: 20120411

REACTIONS (1)
  - Dehydration [Recovered/Resolved]
